FAERS Safety Report 20098219 (Version 1)
Quarter: 2021Q4

REPORT INFORMATION
  Report Type: Spontaneous
  Country: CA (occurrence: CA)
  Receive Date: 20211122
  Receipt Date: 20211122
  Transmission Date: 20220303
  Serious: Yes (Hospitalization)
  Sender: FDA-Public Use
  Company Number: CA-TEVA-2021-CA-1978921

PATIENT
  Age: 74 Year
  Sex: Female

DRUGS (2)
  1. CLOPIDOGREL [Suspect]
     Active Substance: CLOPIDOGREL BISULFATE
     Route: 065
  2. ASPIRIN [Suspect]
     Active Substance: ASPIRIN
     Route: 065

REACTIONS (3)
  - Haemoglobin decreased [Unknown]
  - Gastrointestinal haemorrhage [Unknown]
  - Haematemesis [Unknown]
